FAERS Safety Report 8555655-7 (Version None)
Quarter: 2012Q3

REPORT INFORMATION
  Report Type: 
  Country: None (occurrence: None)
  Receive Date: 20120801
  Receipt Date: 20120718
  Transmission Date: 20120928
  Serious: Yes (Hospitalization)
  Sender: FDA-Public Use
  Company Number: GB-MYLANLABS-2012S1014629

PATIENT
  Age: 44 Year
  Sex: Female
  Weight: 50 kg

DRUGS (3)
  1. LEVOTHYROXINE SODIUM [Concomitant]
     Indication: PRODUCT USED FOR UNKNOWN INDICATION
  2. DOXYCYCLINE HCL [Suspect]
     Indication: OTITIS MEDIA ACUTE
     Route: 048
     Dates: start: 20120622, end: 20120622
  3. TRIMETHOPRIM [Suspect]
     Indication: URINARY TRACT INFECTION
     Dates: start: 20120625, end: 20120628

REACTIONS (2)
  - DRUG-INDUCED LIVER INJURY [None]
  - NAUSEA [None]
